FAERS Safety Report 20756143 (Version 1)
Quarter: 2022Q2

REPORT INFORMATION
  Report Type: Spontaneous
  Country: US (occurrence: US)
  Receive Date: 20220427
  Receipt Date: 20220427
  Transmission Date: 20220720
  Serious: No
  Sender: FDA-Public Use
  Company Number: US-NOVARTISTESTPH-NVSC2022US095485

PATIENT
  Sex: Female
  Weight: 95.254 kg

DRUGS (5)
  1. GILENYA [Suspect]
     Active Substance: FINGOLIMOD HYDROCHLORIDE
     Indication: Multiple sclerosis
     Dosage: 0.5 MG
     Route: 048
     Dates: end: 20220416
  2. HYDROXYCHLOROQUINE [Suspect]
     Active Substance: HYDROXYCHLOROQUINE
     Indication: Cutaneous lupus erythematosus
     Dosage: UNK
     Route: 065
     Dates: end: 20220416
  3. IRON [Suspect]
     Active Substance: IRON
     Indication: Product used for unknown indication
     Dosage: 325 MG
     Route: 048
     Dates: end: 20220416
  4. ZOLOFT [Suspect]
     Active Substance: SERTRALINE HYDROCHLORIDE
     Indication: Depression
     Dosage: 100 MG
     Route: 048
     Dates: end: 20220416
  5. AMITRIPTYLINE [Suspect]
     Active Substance: AMITRIPTYLINE
     Indication: Sleep disorder
     Dosage: 0.75 MG
     Route: 048
     Dates: end: 20220416

REACTIONS (1)
  - Maternal exposure during pregnancy [Unknown]
